FAERS Safety Report 8970821 (Version 2)
Quarter: 2013Q3

REPORT INFORMATION
  Report Type: Report from Study
  Country: JP (occurrence: JP)
  Receive Date: 20121218
  Receipt Date: 20130904
  Transmission Date: 20140515
  Serious: Yes (Other)
  Sender: FDA-Public Use
  Company Number: JP-ROCHE-1167726

PATIENT
  Sex: 0

DRUGS (7)
  1. TRASTUZUMAB [Suspect]
     Indication: HER-2 POSITIVE BREAST CANCER
     Dosage: LOADING DOSE: 4MG/KG
     Route: 065
  2. TRASTUZUMAB [Suspect]
     Dosage: LOADING DOSE: 8 MG/KG
     Route: 065
  3. 5-FU [Suspect]
     Indication: HER-2 POSITIVE BREAST CANCER
     Dosage: 500 MG/M2
     Route: 065
  4. EPIRUBICIN [Suspect]
     Indication: HER-2 POSITIVE BREAST CANCER
     Route: 065
  5. CYCLOPHOSPHAMIDE [Suspect]
     Indication: HER-2 POSITIVE BREAST CANCER
     Route: 065
  6. CYCLOPHOSPHAMIDE [Suspect]
     Route: 065
  7. DOCETAXEL [Suspect]
     Indication: HER-2 POSITIVE BREAST CANCER
     Route: 065

REACTIONS (26)
  - Interstitial lung disease [Unknown]
  - White blood cell count decreased [Unknown]
  - Neutropenia [Unknown]
  - Febrile neutropenia [Unknown]
  - Neutropenic infection [Unknown]
  - Haemoglobin decreased [Unknown]
  - Hepatic function abnormal [Unknown]
  - Vomiting [Unknown]
  - Diarrhoea [Unknown]
  - Abdominal discomfort [Unknown]
  - Fatigue [Unknown]
  - Pulmonary embolism [Unknown]
  - Nail disorder [Unknown]
  - Rash [Unknown]
  - Herpes zoster [Unknown]
  - Palmar-plantar erythrodysaesthesia syndrome [Unknown]
  - Pruritus [Unknown]
  - Skin exfoliation [Unknown]
  - Pigmentation disorder [Unknown]
  - Injection site reaction [Unknown]
  - Vasculitis [Unknown]
  - Oedema peripheral [Unknown]
  - Hypertension [Unknown]
  - Hearing impaired [Unknown]
  - Pharyngitis [Unknown]
  - Deep vein thrombosis [Unknown]
